FAERS Safety Report 4800240-3 (Version None)
Quarter: 2005Q4

REPORT INFORMATION
  Report Type: 
  Country: None (occurrence: None)
  Receive Date: 20051013
  Receipt Date: 20051004
  Transmission Date: 20060501
  Serious: Yes (Hospitalization)
  Sender: FDA-Public Use
  Company Number: 2005133398

PATIENT
  Age: 9 Year
  Sex: Male
  Weight: 25.8 kg

DRUGS (2)
  1. GENOTONORM (SOMATROPIN) [Suspect]
     Indication: HYPOPITUITARISM
     Dosage: 0.9 MG (0.9 MG, DAILY), SUBCUTANEOUS
     Route: 058
     Dates: start: 20031106
  2. LEVOTHYROXINE SODIUM [Concomitant]

REACTIONS (1)
  - THYROID ADENOMA [None]
